FAERS Safety Report 14206810 (Version 1)
Quarter: 2017Q4

REPORT INFORMATION
  Report Type: Other
  Country: KR (occurrence: KR)
  Receive Date: 20171121
  Receipt Date: 20171121
  Transmission Date: 20180321
  Serious: Yes (Other)
  Sender: FDA-Public Use
  Company Number: KR-ACI HEALTHCARE LIMITED-2034711

PATIENT
  Age: 57 Year
  Sex: Male

DRUGS (1)
  1. GABAPENTIN. [Suspect]
     Active Substance: GABAPENTIN
     Indication: NEURALGIA

REACTIONS (2)
  - Myoclonus [Recovered/Resolved]
  - Product use in unapproved indication [Unknown]
